FAERS Safety Report 5052514-1 (Version None)
Quarter: 2006Q3

REPORT INFORMATION
  Report Type: 
  Country: None (occurrence: None)
  Receive Date: 20060713
  Receipt Date: 20060713
  Transmission Date: 20061208
  Serious: Yes (Hospitalization)
  Sender: FDA-Public Use
  Company Number: None

PATIENT
  Age: 67 Year
  Sex: Female

DRUGS (1)
  1. IOHEXOL [Suspect]
     Indication: CATHETERISATION CARDIAC
     Dosage: 105 ML IV
     Route: 042
     Dates: start: 20060111, end: 20060122

REACTIONS (12)
  - ANGIONEUROTIC OEDEMA [None]
  - BIOPSY SKIN ABNORMAL [None]
  - DERMATITIS [None]
  - HYPOTENSION [None]
  - INFLAMMATION [None]
  - PAIN OF SKIN [None]
  - POST PROCEDURAL COMPLICATION [None]
  - PRURITUS [None]
  - PYREXIA [None]
  - RASH ERYTHEMATOUS [None]
  - RASH VESICULAR [None]
  - TYPE IV HYPERSENSITIVITY REACTION [None]
